FAERS Safety Report 8448827-3 (Version None)
Quarter: 2012Q2

REPORT INFORMATION
  Report Type: 
  Country: None (occurrence: None)
  Receive Date: 20120619
  Receipt Date: 20120611
  Transmission Date: 20120825
  Serious: Yes (Other)
  Sender: FDA-Public Use
  Company Number: CA-ROXANE LABORATORIES, INC.-2012-RO-01393RO

PATIENT
  Age: 62 Year
  Sex: Female

DRUGS (3)
  1. PREDNISONE [Suspect]
     Indication: LUPUS NEPHRITIS
  2. METHOTREXATE [Suspect]
     Indication: CONDITION AGGRAVATED
     Route: 048
  3. HYDROXYCHLOROQUINE SULFATE [Suspect]
     Indication: LUPUS NEPHRITIS

REACTIONS (4)
  - CONDITION AGGRAVATED [None]
  - VOMITING [None]
  - PANCYTOPENIA [None]
  - NAUSEA [None]
